FAERS Safety Report 5798503-0 (Version None)
Quarter: 2008Q3

REPORT INFORMATION
  Report Type: 
  Country: None (occurrence: None)
  Receive Date: 20080702
  Receipt Date: 20080623
  Transmission Date: 20090109
  Serious: Yes (Hospitalization)
  Sender: FDA-Public Use
  Company Number: US-MERCK-0705USA04168

PATIENT
  Age: 41 Year
  Sex: Female

DRUGS (6)
  1. FOSAMAX [Suspect]
     Indication: RESORPTION BONE INCREASED
     Route: 048
     Dates: start: 20060301, end: 20060401
  2. FOSAMAX [Suspect]
     Route: 048
     Dates: start: 20050901, end: 20060331
  3. FOSAMAX [Suspect]
     Indication: OSTEOPOROSIS
     Route: 048
     Dates: start: 20060301, end: 20060401
  4. FOSAMAX [Suspect]
     Route: 048
     Dates: start: 20050901, end: 20060331
  5. TOPAMAX [Concomitant]
     Route: 065
     Dates: start: 20040101
  6. IMITREX [Concomitant]
     Route: 065
     Dates: start: 20040101

REACTIONS (24)
  - ASTHMA [None]
  - BENIGN INTRACRANIAL HYPERTENSION [None]
  - CONSTIPATION [None]
  - FIBROMYALGIA [None]
  - GASTROINTESTINAL DISORDER [None]
  - GINGIVAL BLEEDING [None]
  - HEADACHE [None]
  - HYPERTENSION [None]
  - HYPOCHROMIC ANAEMIA [None]
  - IRRITABLE BOWEL SYNDROME [None]
  - JOINT SWELLING [None]
  - MYOFASCIAL PAIN SYNDROME [None]
  - NERVE INJURY [None]
  - OEDEMA [None]
  - PAIN [None]
  - PAIN IN JAW [None]
  - PAPILLOEDEMA [None]
  - POLLAKIURIA [None]
  - SINUS DISORDER [None]
  - TEMPOROMANDIBULAR JOINT SYNDROME [None]
  - TINNITUS [None]
  - TRISMUS [None]
  - VESTIBULITIS [None]
  - VISUAL IMPAIRMENT [None]
